FAERS Safety Report 5330592-X (Version None)
Quarter: 2007Q2

REPORT INFORMATION
  Report Type: 
  Country: None (occurrence: None)
  Receive Date: 20070516
  Receipt Date: 20070511
  Transmission Date: 20071010
  Serious: Yes (Hospitalization)
  Sender: FDA-Public Use
  Company Number: S07-FRA-01907-01

PATIENT
  Age: 34 Year
  Sex: Male

DRUGS (2)
  1. AOTAL (ACAMPROSATE CALCIUM) [Suspect]
     Indication: ALCOHOLISM
     Dosage: 999 MG BID PO
     Route: 048
     Dates: start: 20061228, end: 20070125
  2. EQUANIL [Suspect]
     Dosage: 250 MG TID PO
     Route: 048
     Dates: start: 20061228, end: 20070125

REACTIONS (7)
  - ALKALOSIS [None]
  - FALL [None]
  - HEAD INJURY [None]
  - HYPOKALAEMIA [None]
  - LOSS OF CONSCIOUSNESS [None]
  - MALAISE [None]
  - VOMITING [None]
